FAERS Safety Report 8069759-9 (Version None)
Quarter: 2012Q1

REPORT INFORMATION
  Report Type: 
  Country: None (occurrence: None)
  Receive Date: 20120125
  Receipt Date: 20120118
  Transmission Date: 20120608
  Serious: Yes (Hospitalization)
  Sender: FDA-Public Use
  Company Number: US-PFIZER INC-2011299996

PATIENT
  Sex: Male

DRUGS (1)
  1. SUTENT [Suspect]
     Indication: RENAL CANCER METASTATIC
     Dosage: 50 MG, 1X/DAY 4 WEEKS ON 2 WEEKS OFF
     Route: 048
     Dates: start: 20110314, end: 20111010

REACTIONS (5)
  - FALL [None]
  - OEDEMA [None]
  - WEIGHT DECREASED [None]
  - GAIT DISTURBANCE [None]
  - ASTHENIA [None]
